FAERS Safety Report 22187515 (Version 2)
Quarter: 2023Q2

REPORT INFORMATION
  Report Type: Spontaneous
  Country: FR (occurrence: FR)
  Receive Date: 20230407
  Receipt Date: 20230421
  Transmission Date: 20230722
  Serious: Yes (Disabling, Other)
  Sender: FDA-Public Use
  Company Number: FR-ORGANON-O2303FRA002876

PATIENT
  Age: 65 Year
  Sex: Female

DRUGS (2)
  1. FOSAVANCE [Suspect]
     Active Substance: ALENDRONATE SODIUM\CHOLECALCIFEROL
     Indication: Pathological fracture prophylaxis
     Dosage: UNK
     Route: 048
     Dates: start: 2016, end: 201905
  2. EBASTINE [Concomitant]
     Active Substance: EBASTINE
     Indication: Hypersensitivity
     Dosage: UNK

REACTIONS (13)
  - Tooth extraction [Unknown]
  - Oedema peripheral [Unknown]
  - Tendonitis [Unknown]
  - Tooth disorder [Unknown]
  - Tooth loss [Unknown]
  - Toothache [Unknown]
  - Tooth fracture [Unknown]
  - Ligament pain [Unknown]
  - Back pain [Unknown]
  - Fasciitis [Recovering/Resolving]
  - Plantar fasciitis [Unknown]
  - Complex regional pain syndrome [Recovered/Resolved]
  - Product use issue [Unknown]

NARRATIVE: CASE EVENT DATE: 20190501
